FAERS Safety Report 5887207-1 (Version None)
Quarter: 2008Q3

REPORT INFORMATION
  Report Type: 
  Country: None (occurrence: None)
  Receive Date: 20080915
  Receipt Date: 20080710
  Transmission Date: 20090109
  Serious: Yes (Death, Hospitalization)
  Sender: FDA-Public Use
  Company Number: 001#1#2008-00434

PATIENT
  Sex: Male

DRUGS (1)
  1. ALPROSTADIL [Suspect]
     Indication: PERIPHERAL ARTERIAL OCCLUSIVE DISEASE
     Dosage: 3 DF (3 DF IN 1 DAY(S);

REACTIONS (3)
  - GANGRENE [None]
  - PERIPHERAL ARTERIAL OCCLUSIVE DISEASE [None]
  - PULMONARY EMBOLISM [None]
